FAERS Safety Report 13183408 (Version 1)
Quarter: 2017Q1

REPORT INFORMATION
  Report Type: Other
  Country: FR (occurrence: FR)
  Receive Date: 20170203
  Receipt Date: 20170203
  Transmission Date: 20170428
  Serious: Yes (Death, Other)
  Sender: FDA-Public Use
  Company Number: FR-VALIDUS PHARMACEUTICALS LLC-FR-2017VAL000152

PATIENT
  Age: 84 Year
  Sex: Male

DRUGS (5)
  1. FUROSEMIDE. [Suspect]
     Active Substance: FUROSEMIDE
     Indication: PRODUCT USED FOR UNKNOWN INDICATION
     Dosage: 2 DOSAGE FORM;DAILY
     Route: 048
     Dates: start: 20161231
  2. FLUCONAZOLE. [Suspect]
     Active Substance: FLUCONAZOLE
     Indication: ORAL FUNGAL INFECTION
     Dosage: 100 MILLIGRAM(S); DAILY
     Route: 048
     Dates: start: 20170102
  3. ELIQUIS [Suspect]
     Active Substance: APIXABAN
     Indication: ATRIAL FIBRILLATION
     Dosage: 2 DOSAGE FORM; DAILY
     Route: 048
     Dates: start: 20161230, end: 20170110
  4. ISOPTINE [Suspect]
     Active Substance: VERAPAMIL HYDROCHLORIDE
     Indication: ATRIAL FIBRILLATION
     Dosage: 2 MILLIGRAM(S) ;DAILY
     Route: 042
     Dates: start: 20170103
  5. LOVENOX [Suspect]
     Active Substance: ENOXAPARIN SODIUM
     Indication: THROMBOSIS PROPHYLAXIS
     Dosage: UNK
     Route: 051
     Dates: start: 20170103, end: 20170111

REACTIONS (3)
  - Retroperitoneal haematoma [Fatal]
  - Internal haemorrhage [Fatal]
  - Infusion site extravasation [Unknown]

NARRATIVE: CASE EVENT DATE: 20170111
